FAERS Safety Report 21615099 (Version 2)
Quarter: 2022Q4

REPORT INFORMATION
  Report Type: Spontaneous
  Country: US (occurrence: US)
  Receive Date: 20221118
  Receipt Date: 20221222
  Transmission Date: 20230112
  Serious: Yes (Death)
  Sender: FDA-Public Use
  Company Number: US-PFIZER INC-PV202200106435

PATIENT
  Age: 71 Year
  Sex: Female

DRUGS (1)
  1. IBRANCE [Suspect]
     Active Substance: PALBOCICLIB
     Dosage: 75 MG, CYCLIC (75 MG 3X7 UD TAB 21)

REACTIONS (1)
  - Death [Fatal]

NARRATIVE: CASE EVENT DATE: 20221104
